FAERS Safety Report 17967424 (Version 2)
Quarter: 2020Q4

REPORT INFORMATION
  Report Type: Spontaneous
  Country: US (occurrence: US)
  Receive Date: 20200701
  Receipt Date: 20201223
  Transmission Date: 20210113
  Serious: Yes (Hospitalization, Other)
  Sender: FDA-Public Use
  Company Number: US-TEVA-2020-US-1794244

PATIENT
  Age: 72 Year
  Sex: Female

DRUGS (1)
  1. AJOVY [Suspect]
     Active Substance: FREMANEZUMAB-VFRM
     Indication: PRODUCT USED FOR UNKNOWN INDICATION
     Route: 065

REACTIONS (5)
  - Anaphylactic reaction [Unknown]
  - Dyspnoea [Unknown]
  - Wheezing [Unknown]
  - Paraesthesia oral [Unknown]
  - Swollen tongue [Unknown]
